FAERS Safety Report 6229097-3 (Version None)
Quarter: 2009Q2

REPORT INFORMATION
  Report Type: 
  Country: None (occurrence: None)
  Receive Date: 20090601
  Receipt Date: 20081007
  Transmission Date: 20091009
  Serious: Yes (Other)
  Sender: FDA-Public Use
  Company Number: US200810001655

PATIENT
  Age: 40 Year
  Sex: Male
  Weight: 90.7 kg

DRUGS (6)
  1. BYETTA [Suspect]
     Indication: TYPE 2 DIABETES MELLITUS
     Dosage: 5 UG, 2/D, SUBCUTANEOUS
     Route: 058
     Dates: start: 20080521, end: 20080827
  2. EXENATIDE PEN [Concomitant]
  3. METFORMIN HCL [Concomitant]
  4. LOVASTATIN [Concomitant]
  5. ZETIA [Concomitant]
  6. ENTERIC ASPIRIN (ACETYLSALICYLIC ACID) [Concomitant]

REACTIONS (1)
  - PANCREATITIS [None]
